FAERS Safety Report 13721796 (Version 1)
Quarter: 2017Q3

REPORT INFORMATION
  Report Type: Spontaneous
  Country: DE (occurrence: DE)
  Receive Date: 20170706
  Receipt Date: 20170706
  Transmission Date: 20171127
  Serious: Yes (Hospitalization)
  Sender: FDA-Public Use
  Company Number: DE-BAYER-2017-124776

PATIENT
  Age: 37 Year
  Sex: Female
  Weight: 63 kg

DRUGS (1)
  1. MIRENA [Suspect]
     Active Substance: LEVONORGESTREL
     Indication: CONTRACEPTION
     Dosage: 20 MCG/24HR, CONT
     Route: 015
     Dates: start: 201610, end: 20170504

REACTIONS (7)
  - Pain in extremity [Recovered/Resolved]
  - Liver function test increased [Recovered/Resolved]
  - Migraine [Recovered/Resolved]
  - Anxiety [Recovered/Resolved]
  - Respiratory distress [Recovered/Resolved]
  - Weight increased [Recovered/Resolved]
  - Panic attack [Recovered/Resolved]

NARRATIVE: CASE EVENT DATE: 201611
